FAERS Safety Report 8213474-5 (Version None)
Quarter: 2012Q1

REPORT INFORMATION
  Report Type: 
  Country: None (occurrence: None)
  Receive Date: 20120315
  Receipt Date: 20120312
  Transmission Date: 20120608
  Serious: Yes (Other)
  Sender: FDA-Public Use
  Company Number: GB-BAXTER-2012BH002141

PATIENT
  Age: 39 Year
  Sex: Male

DRUGS (6)
  1. GAMMAGARD LIQUID [Suspect]
     Route: 042
     Dates: start: 20070101
  2. PENTASA [Concomitant]
     Indication: ABDOMINAL PAIN
     Route: 048
     Dates: start: 20090101
  3. GAMMAGARD LIQUID [Suspect]
     Indication: IMMUNODEFICIENCY COMMON VARIABLE
     Route: 042
     Dates: start: 20120108, end: 20120108
  4. GAMMAGARD LIQUID [Suspect]
     Route: 042
     Dates: start: 20120117, end: 20120117
  5. GAMMAGARD LIQUID [Suspect]
     Route: 042
     Dates: start: 20111127, end: 20111127
  6. GAMMAGARD LIQUID [Suspect]
     Route: 042
     Dates: start: 20111217, end: 20111217

REACTIONS (10)
  - URTICARIA [None]
  - EYE SWELLING [None]
  - DYSPEPSIA [None]
  - RASH GENERALISED [None]
  - ABDOMINAL PAIN [None]
  - MALAISE [None]
  - THROAT TIGHTNESS [None]
  - PRURITUS GENERALISED [None]
  - SWOLLEN TONGUE [None]
  - LIP SWELLING [None]
